FAERS Safety Report 8534699-5 (Version None)
Quarter: 2012Q3

REPORT INFORMATION
  Report Type: 
  Country: None (occurrence: None)
  Receive Date: 20120724
  Receipt Date: 20120716
  Transmission Date: 20120928
  Serious: Yes (Death)
  Sender: FDA-Public Use
  Company Number: US-GLAXOSMITHKLINE-A0986164A

PATIENT
  Sex: Male

DRUGS (1)
  1. AVANDIA [Suspect]
     Indication: DIABETES MELLITUS
     Route: 048

REACTIONS (7)
  - INJURY [None]
  - ANHEDONIA [None]
  - CARDIAC DISORDER [None]
  - ECONOMIC PROBLEM [None]
  - DEATH [None]
  - PAIN [None]
  - ANXIETY [None]
